FAERS Safety Report 8599366 (Version 2)
Quarter: 2012Q4

REPORT INFORMATION
  Report Type: 
  Country: MX (occurrence: MX)
  Receive Date: 20120605
  Receipt Date: 20121219
  Transmission Date: 20130627
  Serious: Yes (Death, Other)
  Sender: FDA-Public Use
  Company Number: MX-GLAXOSMITHKLINE-A0979949A

PATIENT
  Sex: Male

DRUGS (3)
  1. AROPAX [Suspect]
     Indication: DEPRESSION
     Dosage: 20MG Per day
     Route: 048
     Dates: start: 201104, end: 20121129
  2. ASCRIPTIN A/D [Concomitant]
     Indication: MULTIPLE MYELOMA
     Dosage: 1U Per day
     Dates: start: 201103
  3. THALIDOMIDE [Concomitant]
     Indication: MULTIPLE MYELOMA
     Dosage: 1U Per day
     Dates: start: 201104

REACTIONS (6)
  - Death [Fatal]
  - Amnesia [Not Recovered/Not Resolved]
  - Memory impairment [Not Recovered/Not Resolved]
  - Irritability [Not Recovered/Not Resolved]
  - Drug ineffective [Not Recovered/Not Resolved]
  - Haemoglobin decreased [Unknown]
